FAERS Safety Report 9253921 (Version 2)
Quarter: 2013Q2

REPORT INFORMATION
  Report Type: Spontaneous
  Country: JP (occurrence: None)
  Receive Date: 20130419
  Receipt Date: 20130426
  Transmission Date: 20140414
  Serious: Yes (Hospitalization)
  Sender: FDA-Public Use
  Company Number: FK201301190

PATIENT
  Age: 75 Year
  Sex: Female
  Weight: 36.7 kg

DRUGS (1)
  1. PROPOFOL [Suspect]
     Indication: ELECTROCONVULSIVE THERAPY

REACTIONS (2)
  - Drug-induced liver injury [None]
  - Lymphocyte stimulation test positive [None]
